FAERS Safety Report 9508362 (Version 1)
Quarter: 2013Q3

REPORT INFORMATION
  Report Type: Spontaneous
  Country: US (occurrence: US)
  Receive Date: 20130909
  Receipt Date: 20130909
  Transmission Date: 20140515
  Serious: No
  Sender: FDA-Public Use
  Company Number: US-PFIZER INC-2013258614

PATIENT
  Age: 52 Year
  Sex: Female

DRUGS (3)
  1. PRISTIQ [Suspect]
     Indication: DEPRESSION
     Dosage: 50 MG, UNK
  2. ZYPREXA [Concomitant]
     Indication: ANXIETY
     Dosage: 10 MG, UNK
  3. KLONOPIN [Concomitant]
     Dosage: 0.5 MG, 3X/DAY

REACTIONS (1)
  - Panic attack [Unknown]
